FAERS Safety Report 6478069-2 (Version None)
Quarter: 2009Q4

REPORT INFORMATION
  Report Type: 
  Country: None (occurrence: None)
  Receive Date: 20091207
  Receipt Date: 20091201
  Transmission Date: 20100525
  Serious: Yes (Life-Threatening)
  Sender: FDA-Public Use
  Company Number: FR-BAYER-200941361GPV

PATIENT
  Age: 4 Year
  Sex: Male
  Weight: 15 kg

DRUGS (10)
  1. FLUDARABINE [Suspect]
     Indication: STEM CELL TRANSPLANT
     Route: 065
     Dates: start: 20091021, end: 20091025
  2. THYMOGLOBULIN [Suspect]
     Indication: STEM CELL TRANSPLANT
     Route: 042
     Dates: start: 20091022, end: 20091022
  3. THYMOGLOBULIN [Suspect]
     Route: 042
     Dates: start: 20091024, end: 20091028
  4. POLARAMINE [Concomitant]
     Indication: PREMEDICATION
  5. PERFALGAN [Concomitant]
     Indication: PREMEDICATION
  6. SOLU-MEDROL [Concomitant]
     Indication: PREMEDICATION
  7. AMIKLIN [Concomitant]
     Indication: PYREXIA
     Dates: start: 20091022, end: 20091023
  8. VANCOMYCIN [Concomitant]
     Dosage: 200, 3XD
     Dates: start: 20091022, end: 20091025
  9. CANCIDAS [Concomitant]
     Dosage: TOTAL DAILY DOSE: 70 MG
     Dates: start: 20091021
  10. ZOPHREN [Concomitant]
     Dosage: TOTAL DAILY DOSE: 8 MG
     Dates: start: 20091021

REACTIONS (6)
  - BLOOD CREATININE INCREASED [None]
  - CAPILLARY LEAK SYNDROME [None]
  - HYPOALBUMINAEMIA [None]
  - OEDEMA [None]
  - OLIGURIA [None]
  - RENAL FAILURE [None]
